FAERS Safety Report 5196566-7 (Version None)
Quarter: 2006Q4

REPORT INFORMATION
  Report Type: 
  Country: None (occurrence: None)
  Receive Date: 20061222
  Receipt Date: 20061212
  Transmission Date: 20070319
  Serious: Yes (Life-Threatening, Hospitalization, Other)
  Sender: FDA-Public Use
  Company Number: MC200600847

PATIENT
  Age: 65 Year
  Sex: Male
  Weight: 95 kg

DRUGS (9)
  1. ANGIOMAX [Suspect]
     Indication: PERCUTANEOUS CORONARY INTERVENTION
     Dosage: 71.5 MG BOLUS IV BOLUS ; 165 MG HR INTRAVENOUS
     Route: 040
     Dates: start: 20061127, end: 20061127
  2. ANGIOMAX [Suspect]
     Indication: PERCUTANEOUS CORONARY INTERVENTION
     Dosage: 71.5 MG BOLUS IV BOLUS ; 165 MG HR INTRAVENOUS
     Route: 040
     Dates: start: 20061127, end: 20061127
  3. EPTIFIBATIDE (EPTIFIBATIDE) [Suspect]
     Indication: STENT OCCLUSION
     Dosage: 8.5 ML, INTRACORONARY
     Route: 022
     Dates: start: 20061127, end: 20061127
  4. ATENOL (ATENOLOL) [Concomitant]
  5. ZOFENOPRIL [Concomitant]
  6. NIFEDIPIN (NIFEDIPINE) [Concomitant]
  7. ASPIRIN [Concomitant]
  8. FLECTADOL (ACETYLSALICYLATE LYSINE) [Concomitant]
  9. PLAVIX [Concomitant]

REACTIONS (7)
  - ACUTE MYOCARDIAL INFARCTION [None]
  - ATRIAL THROMBOSIS [None]
  - CARDIAC PROCEDURE COMPLICATION [None]
  - CORONARY ARTERY DISEASE [None]
  - PNEUMONIA ASPIRATION [None]
  - STENT OCCLUSION [None]
  - VENTRICULAR FIBRILLATION [None]
